FAERS Safety Report 26094459 (Version 1)
Quarter: 2025Q4

REPORT INFORMATION
  Report Type: Spontaneous
  Country: US (occurrence: US)
  Receive Date: 20251126
  Receipt Date: 20251126
  Transmission Date: 20260117
  Serious: Yes (Hospitalization, Other)
  Sender: ELI LILLY AND COMPANY
  Company Number: US-ELI_LILLY_AND_COMPANY-US202511025227

PATIENT
  Age: 82 Year
  Sex: Male

DRUGS (2)
  1. KISUNLA [Suspect]
     Active Substance: DONANEMAB-AZBT
     Indication: Cognitive disorder
     Dosage: 700 MG, UNKNOWN
     Route: 065
  2. KISUNLA [Suspect]
     Active Substance: DONANEMAB-AZBT
     Indication: Dementia Alzheimer^s type
     Dosage: 700 MG, UNKNOWN (2ND INFUSION)
     Route: 065
     Dates: start: 20251107

REACTIONS (2)
  - Diverticulitis [Not Recovered/Not Resolved]
  - Diverticulum intestinal [Not Recovered/Not Resolved]

NARRATIVE: CASE EVENT DATE: 20251107
